FAERS Safety Report 4277000-8 (Version None)
Quarter: 2004Q1

REPORT INFORMATION
  Report Type: 
  Country: None (occurrence: None)
  Receive Date: 20040120
  Receipt Date: 20040107
  Transmission Date: 20041129
  Serious: Yes (Life-Threatening, Hospitalization)
  Sender: FDA-Public Use
  Company Number: 03P-062-0245368-00

PATIENT
  Age: 58 Year
  Sex: Male

DRUGS (9)
  1. HUMIRA [Suspect]
     Indication: RHEUMATOID ARTHRITIS
     Dosage: 40 MG, SUBCUTANEOUS
     Route: 058
     Dates: start: 20031021, end: 20031216
  2. NSAID'S [Concomitant]
  3. ISONIAZID [Concomitant]
  4. PREDNISOLONE [Concomitant]
  5. INOCIT [Concomitant]
  6. DICLOFENAC SODIUM [Concomitant]
  7. TOCOPHEROL CONCENTRATE CAP [Concomitant]
  8. CALCILAC [Concomitant]
  9. ZOPICLONE [Concomitant]

REACTIONS (7)
  - BENIGN PROSTATIC HYPERPLASIA [None]
  - CARDIOVASCULAR DISORDER [None]
  - PANCREATITIS ACUTE [None]
  - PANCREATITIS NECROTISING [None]
  - SYNCOPE [None]
  - URINARY TRACT OBSTRUCTION [None]
  - VENTRICULAR EXTRASYSTOLES [None]
